FAERS Safety Report 21128273 (Version 1)
Quarter: 2022Q3

REPORT INFORMATION
  Report Type: Spontaneous
  Country: US (occurrence: None)
  Receive Date: 20220725
  Receipt Date: 20220725
  Transmission Date: 20221027
  Serious: No
  Sender: FDA-Public Use
  Company Number: None

PATIENT
  Age: 44 Year
  Sex: Female
  Weight: 63 kg

DRUGS (1)
  1. PAXLOVID [Suspect]
     Active Substance: NIRMATRELVIR\RITONAVIR
     Indication: COVID-19
     Dosage: OTHER QUANTITY : 6 TABLET(S);?FREQUENCY : TWICE A DAY;?
     Route: 048
     Dates: start: 20220723

REACTIONS (7)
  - Menstruation irregular [None]
  - Heavy menstrual bleeding [None]
  - Dysgeusia [None]
  - Tongue discolouration [None]
  - Heart rate increased [None]
  - Headache [None]
  - Sensory disturbance [None]

NARRATIVE: CASE EVENT DATE: 20220724
